FAERS Safety Report 6470709-7 (Version None)
Quarter: 2009Q4

REPORT INFORMATION
  Report Type: 
  Country: None (occurrence: None)
  Receive Date: 20091203
  Receipt Date: 20091130
  Transmission Date: 20100525
  Serious: Yes (Other)
  Sender: FDA-Public Use
  Company Number: A0832260A

PATIENT
  Age: 78 Year
  Sex: Male

DRUGS (6)
  1. AVODART [Suspect]
     Dosage: 1CAP PER DAY
     Route: 048
     Dates: start: 20090901
  2. LISINOPRIL [Concomitant]
  3. FLOMAX [Concomitant]
  4. SIMVASTATIN [Concomitant]
  5. SUPPLEMENT [Concomitant]
  6. BETAMETHASONE DIPROPIONATE [Concomitant]

REACTIONS (4)
  - ERYTHEMA [None]
  - PROSTATIC SPECIFIC ANTIGEN INCREASED [None]
  - PSORIASIS [None]
  - THYROID FUNCTION TEST ABNORMAL [None]
